FAERS Safety Report 4284044-9 (Version None)
Quarter: 2004Q1

REPORT INFORMATION
  Report Type: 
  Country: None (occurrence: None)
  Receive Date: 20040202
  Receipt Date: 20040202
  Transmission Date: 20041129
  Serious: Yes (Hospitalization)
  Sender: FDA-Public Use
  Company Number: None

PATIENT
  Age: 30 Year
  Sex: Male
  Weight: 94.8018 kg

DRUGS (2)
  1. DOCETAXEL 40 MG/M2 AVENTIS [Suspect]
     Indication: NON-SMALL CELL LUNG CANCER RECURRENT
     Dosage: 40MG/M2 DAY 1 INTRAVENOUS
     Route: 042
     Dates: start: 20031204, end: 20040115
  2. GEMCITABINE 800 MG/M2 LILLY [Suspect]
     Dosage: 800MG/M2 DAY 1 AND INTRAVENOUS
     Route: 042
     Dates: start: 20031204, end: 20040115

REACTIONS (1)
  - FEBRILE NEUTROPENIA [None]
